FAERS Safety Report 9571040 (Version 1)
Quarter: 2013Q4

REPORT INFORMATION
  Report Type: Spontaneous
  Country: NL (occurrence: NL)
  Receive Date: 20131001
  Receipt Date: 20131001
  Transmission Date: 20140711
  Serious: Yes (Hospitalization)
  Sender: FDA-Public Use
  Company Number: NL-BAYER-2013-117791

PATIENT
  Age: 59 Year
  Sex: Male

DRUGS (1)
  1. ACETYLSALICYLIC ACID({=100 MG) [Suspect]
     Indication: CARDIAC OPERATION
     Dosage: 1 DF, QD
     Dates: start: 200403, end: 200606

REACTIONS (1)
  - Nasal polyps [Recovered/Resolved]
